FAERS Safety Report 6631952-7 (Version None)
Quarter: 2010Q1

REPORT INFORMATION
  Report Type: 
  Country: None (occurrence: None)
  Receive Date: 20100312
  Receipt Date: 20090605
  Transmission Date: 20100710
  Serious: No
  Sender: FDA-Public Use
  Company Number: US-BIOGENIDEC-2009BI017113

PATIENT
  Age: 53 Year
  Sex: Female

DRUGS (5)
  1. AVONEX [Suspect]
     Indication: MULTIPLE SCLEROSIS
     Route: 030
     Dates: start: 20090217, end: 20090217
  2. AVONEX [Suspect]
     Route: 030
     Dates: start: 20090317, end: 20090317
  3. AVONEX [Suspect]
     Route: 030
     Dates: start: 20090526, end: 20090602
  4. AVONEX [Suspect]
     Route: 030
     Dates: start: 20090602
  5. ADVIL LIQUI-GELS [Concomitant]
     Indication: PREMEDICATION
     Route: 048

REACTIONS (13)
  - CONFUSIONAL STATE [None]
  - COUGH [None]
  - DIZZINESS [None]
  - IMMUNE SYSTEM DISORDER [None]
  - INFLUENZA [None]
  - MOBILITY DECREASED [None]
  - OROPHARYNGEAL PAIN [None]
  - PHARYNGEAL DISORDER [None]
  - PHARYNGEAL ULCERATION [None]
  - PYREXIA [None]
  - RESPIRATORY DISORDER [None]
  - RESPIRATORY TRACT CONGESTION [None]
  - UPPER RESPIRATORY TRACT CONGESTION [None]
